FAERS Safety Report 6818325-9 (Version None)
Quarter: 2010Q3

REPORT INFORMATION
  Report Type: 
  Country: None (occurrence: None)
  Receive Date: 20100706
  Receipt Date: 20071115
  Transmission Date: 20110219
  Serious: No
  Sender: FDA-Public Use
  Company Number: US-PFIZER INC-2007096916

PATIENT
  Sex: Female
  Weight: 70 kg

DRUGS (9)
  1. ZITHROMAX [Suspect]
     Indication: CHRONIC OBSTRUCTIVE PULMONARY DISEASE
     Route: 042
     Dates: start: 20071115
  2. NITROGLYCERIN [Concomitant]
  3. GLUCOTROL [Concomitant]
     Route: 048
  4. TOPROL-XL [Concomitant]
  5. ACETYLSALICYLIC ACID [Concomitant]
     Route: 048
  6. TIAZAC [Concomitant]
     Route: 048
  7. LASIX [Concomitant]
     Route: 048
  8. LANTUS [Concomitant]
  9. GLYCERYL TRINITRATE [Concomitant]
     Route: 060

REACTIONS (6)
  - ERYTHEMA [None]
  - FLUSHING [None]
  - INJECTION SITE PAIN [None]
  - OVERDOSE [None]
  - PAIN IN EXTREMITY [None]
  - URTICARIA [None]
